FAERS Safety Report 25866807 (Version 2)
Quarter: 2025Q4

REPORT INFORMATION
  Report Type: Spontaneous
  Country: US (occurrence: US)
  Receive Date: 20251001
  Receipt Date: 20251003
  Transmission Date: 20260118
  Serious: Yes (Other)
  Sender: SANOFI AVENTIS
  Company Number: US-SA-2025SA289061

PATIENT
  Age: 82 Year
  Sex: Female
  Weight: 39.002 kg

DRUGS (11)
  1. DUPIXENT [Suspect]
     Active Substance: DUPILUMAB
     Indication: Dermatitis atopic
     Dosage: 300 MG, QOW
     Route: 058
  2. TRIAMCINOLONE [Concomitant]
     Active Substance: TRIAMCINOLONE
  3. FLUOCINONIDE [Concomitant]
     Active Substance: FLUOCINONIDE
  4. ROPINIROLE HYDROCHLORIDE [Concomitant]
     Active Substance: ROPINIROLE HYDROCHLORIDE
  5. ROSUVASTATIN [Concomitant]
     Active Substance: ROSUVASTATIN
  6. PIMECROLIMUS [Concomitant]
     Active Substance: PIMECROLIMUS
  7. JARDIANCE [Concomitant]
     Active Substance: EMPAGLIFLOZIN
  8. KETOCONAZOLE [Concomitant]
     Active Substance: KETOCONAZOLE
  9. CETIRIZINE [Concomitant]
     Active Substance: CETIRIZINE HYDROCHLORIDE
  10. Ipratropium br [Concomitant]
  11. AZELASTINE [Concomitant]
     Active Substance: AZELASTINE

REACTIONS (6)
  - Autoimmune disorder [Unknown]
  - Alopecia [Unknown]
  - Weight decreased [Unknown]
  - Eczema [Unknown]
  - Erythema [Unknown]
  - Therapeutic response shortened [Unknown]

NARRATIVE: CASE EVENT DATE: 20250101
